FAERS Safety Report 8538347-X (Version None)
Quarter: 2012Q3

REPORT INFORMATION
  Report Type: 
  Country: None (occurrence: None)
  Receive Date: 20120726
  Receipt Date: 20120420
  Transmission Date: 20120928
  Serious: No
  Sender: FDA-Public Use
  Company Number: US-PFIZER INC-2012179864

PATIENT
  Sex: Female

DRUGS (2)
  1. CHANTIX [Suspect]
     Dosage: 0.5 MG, UNK
  2. CHANTIX [Suspect]
     Dosage: 1.0 MG, UNK

REACTIONS (1)
  - ABDOMINAL PAIN UPPER [None]
